FAERS Safety Report 24893549 (Version 3)
Quarter: 2025Q3

REPORT INFORMATION
  Report Type: Spontaneous
  Country: EU (occurrence: EU)
  Receive Date: 20250128
  Receipt Date: 20250731
  Transmission Date: 20251021
  Serious: Yes (Other)
  Sender: AUROBINDO
  Company Number: EU-MLMSERVICE-20250110-PI336320-00141-5

PATIENT
  Age: 51 Year
  Sex: Female

DRUGS (26)
  1. EXEMESTANE [Suspect]
     Active Substance: EXEMESTANE
     Indication: Metastases to bone
     Route: 065
     Dates: start: 201501
  2. EXEMESTANE [Suspect]
     Active Substance: EXEMESTANE
     Indication: Breast cancer metastatic
  3. EXEMESTANE [Suspect]
     Active Substance: EXEMESTANE
     Indication: Hormone receptor positive HER2 negative breast cancer
  4. EXEMESTANE [Suspect]
     Active Substance: EXEMESTANE
     Indication: Malignant neoplasm progression
  5. FULVESTRANT [Suspect]
     Active Substance: FULVESTRANT
     Indication: Bone cancer
     Dosage: 500 MILLIGRAM, EVERY 4 WEEK
     Route: 030
  6. DOCETAXEL [Suspect]
     Active Substance: DOCETAXEL
     Indication: Metastases to bone
     Dosage: 20 MILLIGRAM/SQ. METER, ONCE A DAY (20 MG/M2 ON DAY 1,8,15)
     Route: 065
     Dates: start: 201501
  7. DOCETAXEL [Suspect]
     Active Substance: DOCETAXEL
     Indication: Breast cancer metastatic
  8. DOCETAXEL [Suspect]
     Active Substance: DOCETAXEL
     Indication: Hormone receptor positive HER2 negative breast cancer
  9. GEMCITABINE [Suspect]
     Active Substance: GEMCITABINE
     Indication: Metastases to bone
     Dosage: 750 MILLIGRAM/SQ. METER, ONCE A DAY (750 MG/M2 ON DAYS 2 AND 16)
     Route: 065
     Dates: start: 201501
  10. GEMCITABINE [Suspect]
     Active Substance: GEMCITABINE
     Indication: Breast cancer metastatic
  11. GEMCITABINE [Suspect]
     Active Substance: GEMCITABINE
     Indication: Hormone receptor negative HER2 positive breast cancer
  12. VINORELBINE [Suspect]
     Active Substance: VINORELBINE TARTRATE
     Indication: Metastases to bone
     Dosage: 15 MILLIGRAM/SQ. METER, ONCE A DAY (15 MG/M2 ON DAY 2,18)
     Route: 065
     Dates: start: 201501
  13. VINORELBINE [Suspect]
     Active Substance: VINORELBINE TARTRATE
     Indication: Breast cancer metastatic
  14. VINORELBINE [Suspect]
     Active Substance: VINORELBINE TARTRATE
     Indication: Hormone receptor positive HER2 negative breast cancer
  15. EVEROLIMUS [Suspect]
     Active Substance: EVEROLIMUS
     Indication: Metastases to bone
     Route: 065
     Dates: start: 201501, end: 201902
  16. EVEROLIMUS [Suspect]
     Active Substance: EVEROLIMUS
     Indication: Breast cancer metastatic
  17. EVEROLIMUS [Suspect]
     Active Substance: EVEROLIMUS
     Indication: Hormone receptor positive HER2 negative breast cancer
  18. EVEROLIMUS [Suspect]
     Active Substance: EVEROLIMUS
     Indication: Malignant neoplasm progression
  19. CAPECITABINE [Suspect]
     Active Substance: CAPECITABINE
     Indication: Breast cancer metastatic
     Route: 065
     Dates: start: 201902
  20. PALBOCICLIB [Suspect]
     Active Substance: PALBOCICLIB
     Indication: Bone cancer
     Dosage: 125 MILLIGRAM, ONCE A DAY
     Route: 065
  21. TAMOXIFEN [Suspect]
     Active Substance: TAMOXIFEN
     Indication: Breast cancer metastatic
     Dosage: 20 MILLIGRAM, ONCE A DAY
     Route: 048
  22. TAMOXIFEN [Suspect]
     Active Substance: TAMOXIFEN
     Indication: Breast cancer
     Route: 048
  23. ZOLEDRONIC ACID [Concomitant]
     Active Substance: ZOLEDRONIC ACID
     Indication: Metastases to bone
     Route: 042
     Dates: start: 201401, end: 2017
  24. ZOLEDRONIC ACID [Concomitant]
     Active Substance: ZOLEDRONIC ACID
     Indication: Bone cancer
  25. GONADORELIN DIACETATE TETRAHYDRATE [Concomitant]
     Active Substance: GONADORELIN DIACETATE TETRAHYDRATE
     Indication: Breast cancer
     Route: 030
  26. DENOSUMAB [Concomitant]
     Active Substance: DENOSUMAB
     Indication: Product used for unknown indication
     Route: 058

REACTIONS (9)
  - Leukopenia [Unknown]
  - Osteonecrosis of jaw [Unknown]
  - Hypertransaminasaemia [Unknown]
  - Nausea [Unknown]
  - Fatigue [Unknown]
  - Female reproductive tract disorder [Unknown]
  - Off label use [Unknown]
  - Inappropriate schedule of product administration [Unknown]
  - Drug ineffective [Unknown]

NARRATIVE: CASE EVENT DATE: 20150101
